FAERS Safety Report 5223934-7 (Version None)
Quarter: 2007Q1

REPORT INFORMATION
  Report Type: 
  Country: None (occurrence: None)
  Receive Date: 20070130
  Receipt Date: 20070119
  Transmission Date: 20070707
  Serious: Yes (Hospitalization)
  Sender: FDA-Public Use
  Company Number: SE-PURDUE-GBR_2007_0002764

PATIENT
  Age: 78 Year
  Sex: Female

DRUGS (7)
  1. OXYNORM CAPSULES 5 MG [Suspect]
     Indication: POSTOPERATIVE ANALGESIA
     Dosage: 5 MG, PRN
     Route: 048
     Dates: start: 20061204, end: 20061205
  2. KETOGAN [Suspect]
     Indication: POSTOPERATIVE ANALGESIA
     Dosage: 5 MG, SINGLE
     Route: 042
     Dates: start: 20061205, end: 20061205
  3. SIMVASTATIN [Concomitant]
     Indication: DRUG USE FOR UNKNOWN INDICATION
     Route: 065
  4. PANODIL [Concomitant]
     Indication: PAIN
     Dosage: 500 MG, UNK
     Route: 065
  5. CARDIZEM [Concomitant]
     Indication: DRUG USE FOR UNKNOWN INDICATION
     Dosage: 60 MG, UNK
     Route: 065
  6. EFFEXOR [Concomitant]
     Indication: DRUG USE FOR UNKNOWN INDICATION
     Dosage: 150 MG, UNK
     Route: 065
  7. OXYCONTIN TABLETS 10 MG [Suspect]
     Indication: POSTOPERATIVE ANALGESIA
     Dosage: 10 MG, DAILY
     Route: 048
     Dates: start: 20061204, end: 20061205

REACTIONS (3)
  - FEAR [None]
  - HALLUCINATION, AUDITORY [None]
  - HALLUCINATION, VISUAL [None]
